FAERS Safety Report 9144543 (Version 2)
Quarter: 2013Q2

REPORT INFORMATION
  Report Type: Spontaneous
  Country: US (occurrence: US)
  Receive Date: 20130306
  Receipt Date: 20130410
  Transmission Date: 20140414
  Serious: Yes (Other)
  Sender: FDA-Public Use
  Company Number: CHPA2013US003863

PATIENT
  Age: 89 Year
  Sex: Female

DRUGS (2)
  1. GAS-X EXTRA STRENGTH SOFTGELS [Suspect]
     Indication: ABDOMINAL DISTENSION
     Dosage: 4 DF, QD
     Route: 048
     Dates: start: 201302
  2. GAS-X EXTRA STRENGTH SOFTGELS [Suspect]
     Dosage: UNK, UNK

REACTIONS (3)
  - Kidney infection [Not Recovered/Not Resolved]
  - Abdominal distension [Unknown]
  - Drug ineffective [Unknown]
